FAERS Safety Report 4367449-7 (Version None)
Quarter: 2004Q2

REPORT INFORMATION
  Report Type: 
  Country: None (occurrence: None)
  Receive Date: 20040528
  Receipt Date: 20040519
  Transmission Date: 20050107
  Serious: Yes (Other)
  Sender: FDA-Public Use
  Company Number: A-US2004-06281

PATIENT
  Age: 41 Year
  Sex: Female

DRUGS (11)
  1. TRACLEER [Suspect]
     Indication: PULMONARY HYPERTENSION
     Dosage: 125 MG BID ORAL; 62.5 MG BID ORAL
     Route: 048
     Dates: start: 20020701, end: 20020801
  2. TRACLEER [Suspect]
     Indication: PULMONARY HYPERTENSION
     Dosage: 125 MG BID ORAL; 62.5 MG BID ORAL
     Route: 048
     Dates: start: 20020801, end: 20040416
  3. COUMADIN [Concomitant]
  4. FLOLAN [Concomitant]
  5. PROTONIX [Concomitant]
  6. IRON (IRON) [Concomitant]
  7. LASIX [Concomitant]
  8. VITAMIN C (ASCORBIC ACID) [Concomitant]
  9. CELEXA [Concomitant]
  10. ALDACTONE [Concomitant]
  11. MAGNESIUM OXIDE (MAGNESIUM OXIDE) [Concomitant]

REACTIONS (1)
  - PREGNANCY [None]
